FAERS Safety Report 10790243 (Version 1)
Quarter: 2015Q1

REPORT INFORMATION
  Report Type: Spontaneous
  Country: US (occurrence: US)
  Receive Date: 20150212
  Receipt Date: 20150212
  Transmission Date: 20150721
  Serious: No
  Sender: FDA-Public Use
  Company Number: US-GLAXOSMITHKLINE-A1072625A

PATIENT

DRUGS (3)
  1. VITAMIN A [Concomitant]
     Active Substance: VITAMIN A
  2. VITAMIN C [Concomitant]
     Active Substance: ASCORBIC ACID
  3. VENTOLIN [Suspect]
     Active Substance: ALBUTEROL SULFATE
     Indication: CHRONIC OBSTRUCTIVE PULMONARY DISEASE
     Route: 055
     Dates: start: 201401

REACTIONS (1)
  - Electrocardiogram ST segment abnormal [Not Recovered/Not Resolved]
